FAERS Safety Report 21238501 (Version 4)
Quarter: 2022Q3

REPORT INFORMATION
  Report Type: Report from Study
  Country: CA (occurrence: CA)
  Receive Date: 20220822
  Receipt Date: 20220908
  Transmission Date: 20221026
  Serious: Yes (Other)
  Sender: FDA-Public Use
  Company Number: CA-GLAXOSMITHKLINE-CA2022119472

PATIENT

DRUGS (1)
  1. MEPOLIZUMAB [Suspect]
     Active Substance: MEPOLIZUMAB
     Indication: Asthma
     Dosage: 100 MG, Z EVERY 4 WEEKS
     Route: 058
     Dates: start: 20200616

REACTIONS (12)
  - Oesophageal obstruction [Not Recovered/Not Resolved]
  - Somnolence [Unknown]
  - Speech disorder [Not Recovered/Not Resolved]
  - Cough [Not Recovered/Not Resolved]
  - Increased viscosity of upper respiratory secretion [Not Recovered/Not Resolved]
  - Dysphagia [Not Recovered/Not Resolved]
  - Oesophageal motility disorder [Unknown]
  - Affective disorder [Unknown]
  - Vomiting [Unknown]
  - Mood altered [Unknown]
  - Drug ineffective [Unknown]
  - Inappropriate schedule of product administration [Unknown]

NARRATIVE: CASE EVENT DATE: 20220629
